FAERS Safety Report 10232642 (Version 1)
Quarter: 2014Q2

REPORT INFORMATION
  Report Type: Spontaneous
  Country: CL (occurrence: CL)
  Receive Date: 20140612
  Receipt Date: 20140612
  Transmission Date: 20141212
  Serious: Yes (Other)
  Sender: FDA-Public Use
  Company Number: CL-PFIZER INC-2014155269

PATIENT
  Age: 86 Year
  Sex: Male

DRUGS (5)
  1. XALATAN [Suspect]
     Indication: GLAUCOMA
     Dosage: UNK
     Dates: start: 2012
  2. NORVASC [Concomitant]
  3. DIGOXIN [Concomitant]
  4. ECOTRIN [Concomitant]
  5. ALLOPURINOL [Concomitant]

REACTIONS (1)
  - Cataract [Unknown]
